FAERS Safety Report 5730945-1 (Version None)
Quarter: 2008Q2

REPORT INFORMATION
  Report Type: 
  Country: None (occurrence: None)
  Receive Date: 20080507
  Receipt Date: 20080429
  Transmission Date: 20081010
  Serious: Yes (Hospitalization)
  Sender: FDA-Public Use
  Company Number: NO-AMGEN-US268973

PATIENT
  Age: 44 Year
  Sex: Male

DRUGS (2)
  1. ENBREL [Suspect]
     Indication: PSORIASIS
     Route: 065
     Dates: start: 20071001, end: 20080101
  2. METHOTREXATE [Suspect]
     Dosage: 7,5 MG, DOSE FREQUENCY UNKNOWN
     Route: 065
     Dates: start: 20071001

REACTIONS (1)
  - CONVULSION [None]
